FAERS Safety Report 23819837 (Version 1)
Quarter: 2024Q2

REPORT INFORMATION
  Report Type: Spontaneous
  Country: US (occurrence: None)
  Receive Date: 20240503
  Receipt Date: 20240503
  Transmission Date: 20240716
  Serious: Yes (Hospitalization)
  Sender: FDA-Public Use
  Company Number: None

PATIENT
  Age: 69 Year
  Sex: Male
  Weight: 108 kg

DRUGS (2)
  1. DOFETILIDE [Suspect]
     Active Substance: DOFETILIDE
     Indication: Atrial fibrillation
     Dosage: FREQUENCY : TWICE A DAY;?
     Route: 048
     Dates: start: 20150815, end: 20221020
  2. DOFETILIDE [Suspect]
     Active Substance: DOFETILIDE
     Indication: Cardiac failure congestive

REACTIONS (1)
  - Tachyarrhythmia [None]

NARRATIVE: CASE EVENT DATE: 20221020
